FAERS Safety Report 7629346-0 (Version None)
Quarter: 2011Q3

REPORT INFORMATION
  Report Type: 
  Country: None (occurrence: None)
  Receive Date: 20110722
  Receipt Date: 20110719
  Transmission Date: 20111222
  Serious: Yes (Death, Life-Threatening, Hospitalization, Other)
  Sender: FDA-Public Use
  Company Number: JP-PFIZER INC-2010083645

PATIENT
  Age: 57 Year
  Sex: Female
  Weight: 57 kg

DRUGS (18)
  1. LANSOPRAZOLE [Concomitant]
     Dosage: UNK
     Route: 048
  2. PURSENNID [Concomitant]
     Dosage: UNK
     Route: 048
     Dates: start: 20100317
  3. ADRENALIN IN OIL INJ [Concomitant]
     Indication: SHOCK
     Dosage: UNK
     Dates: start: 20101230, end: 20101230
  4. LASIX [Concomitant]
     Indication: PULMONARY HYPERTENSION
     Dosage: UNK
     Route: 048
  5. MAGNESIUM OXIDE [Concomitant]
     Dosage: UNK
     Route: 048
     Dates: start: 20100421
  6. VERAPAMIL HCL [Concomitant]
     Dosage: UNK
     Route: 048
     Dates: start: 20091027
  7. SOLDACTONE [Concomitant]
     Indication: PULMONARY HYPERTENSION
     Dosage: UNK
     Route: 042
     Dates: start: 20101227, end: 20101230
  8. TRACLEER [Concomitant]
     Indication: PULMONARY HYPERTENSION
     Dosage: UNK
     Route: 048
     Dates: start: 20100309
  9. CARVEDILOL [Concomitant]
     Indication: PULMONARY HYPERTENSION
     Dosage: UNK
     Route: 048
  10. TRICHLORMETHIAZIDE [Concomitant]
     Indication: PULMONARY HYPERTENSION
     Dosage: UNK
     Route: 048
     Dates: start: 20100226
  11. ATROPINE [Concomitant]
     Indication: SHOCK
     Dosage: UNK
     Dates: start: 20101230, end: 20101230
  12. ALDACTONE [Concomitant]
     Indication: PULMONARY HYPERTENSION
     Dosage: UNK
     Route: 048
  13. WARFARIN [Concomitant]
     Indication: PULMONARY HYPERTENSION
     Dosage: UNK
     Route: 048
  14. LENDORMIN [Concomitant]
     Dosage: UNK
     Route: 048
     Dates: start: 20100127
  15. INFLUENZA VACCINE [Concomitant]
     Dosage: UNK
     Route: 058
     Dates: start: 20101213, end: 20101213
  16. PRIMPERAN TAB [Concomitant]
     Indication: NAUSEA
     Dosage: UNK
     Route: 042
     Dates: start: 20101229, end: 20101229
  17. SILDENAFIL CITRATE [Suspect]
     Indication: PULMONARY ARTERIAL HYPERTENSION
     Dosage: 20 MG, 3X/DAY
     Dates: start: 20090612
  18. BERAPROST SODIUM [Concomitant]
     Indication: PULMONARY HYPERTENSION
     Dosage: UNK
     Route: 048
     Dates: start: 20100202

REACTIONS (2)
  - BREAST CANCER [None]
  - PULMONARY HYPERTENSION [None]
